FAERS Safety Report 9348870 (Version 1)
Quarter: 2013Q2

REPORT INFORMATION
  Report Type: Spontaneous
  Country: FR (occurrence: FR)
  Receive Date: 20130614
  Receipt Date: 20130614
  Transmission Date: 20140414
  Serious: Yes (Death, Hospitalization)
  Sender: FDA-Public Use
  Company Number: FR-TEVA-412323ISR

PATIENT
  Age: 71 Year
  Sex: Male

DRUGS (2)
  1. FUROSEMIDE TEVA [Suspect]
     Dosage: FUROSEMIDE TEVA 40 MG. 2.2.77
     Dates: start: 20130531, end: 20130601
  2. FUROSEMIDE TEVA [Suspect]
     Dosage: 250 MILLIGRAM DAILY; FUROSEMIDE TEVA 500MG, 0.25 TAB AT 07:00 AM AND AT 01:00 PM
     Dates: start: 20130601

REACTIONS (4)
  - Death [Fatal]
  - Condition aggravated [Fatal]
  - Insomnia [Fatal]
  - Vomiting [Unknown]
